FAERS Safety Report 23612775 (Version 1)
Quarter: 2024Q1

REPORT INFORMATION
  Report Type: Spontaneous
  Country: US (occurrence: US)
  Receive Date: 20240308
  Receipt Date: 20240308
  Transmission Date: 20240410
  Serious: No
  Sender: FDA-Public Use
  Company Number: US-MYOVANT SCIENCES GMBH-2023MYSCI1101006

PATIENT
  Age: 79 Year
  Sex: Male

DRUGS (5)
  1. ORGOVYX [Suspect]
     Active Substance: RELUGOLIX
     Indication: Prostate cancer
     Dosage: 240 MILLIGRAM, QD
     Route: 048
     Dates: end: 20231126
  2. FLONASE                            /00972202/ [Concomitant]
     Indication: Hypersensitivity
     Dosage: 2 SPRAYS IN EACH NOSTRIL, PRN
     Route: 045
  3. VITAMINS NOS [Concomitant]
     Active Substance: VITAMINS
     Indication: Routine health maintenance
     Dosage: 1 UNK, QD
     Route: 065
     Dates: start: 2023
  4. OMEGA 3                            /01333901/ [Concomitant]
     Indication: Routine health maintenance
     Dosage: 600 MILLIGRAM, BID
     Route: 065
  5. OMEPRAZOLE [Concomitant]
     Active Substance: OMEPRAZOLE
     Indication: Gastrooesophageal reflux disease
     Dosage: 20 MILLIGRAM, QD
     Route: 065
     Dates: start: 202303

REACTIONS (2)
  - Therapy interrupted [Unknown]
  - Incorrect dosage administered [Unknown]

NARRATIVE: CASE EVENT DATE: 20231127
